FAERS Safety Report 22518272 (Version 1)
Quarter: 2023Q2

REPORT INFORMATION
  Report Type: Spontaneous
  Country: BR (occurrence: BR)
  Receive Date: 20230605
  Receipt Date: 20230605
  Transmission Date: 20230722
  Serious: Yes (Hospitalization)
  Sender: FDA-Public Use
  Company Number: BR-BoehringerIngelheim-2023-BI-240735

PATIENT

DRUGS (2)
  1. ATROVENT [Suspect]
     Active Substance: IPRATROPIUM BROMIDE
     Indication: Product used for unknown indication
     Dosage: BY MISTAKE, 5ML OR 100 DROPS OF THE MEDICATION ATROVENT, TWICE (ONCE IN THE NIGHT AND ONCE IN THE MO
     Route: 055
  2. ATROVENT [Suspect]
     Active Substance: IPRATROPIUM BROMIDE
     Dosage: WITH 5ML OF SALINE SOLUTION
     Route: 055

REACTIONS (6)
  - Coma [Unknown]
  - Dyspnoea [Unknown]
  - Renal failure [Unknown]
  - Blood pressure abnormal [Unknown]
  - Wrong dose [Unknown]
  - Dysuria [Unknown]
